FAERS Safety Report 5188596-6 (Version None)
Quarter: 2006Q4

REPORT INFORMATION
  Report Type: 
  Country: None (occurrence: None)
  Receive Date: 20061221
  Receipt Date: 20061213
  Transmission Date: 20070319
  Serious: Yes (Death)
  Sender: FDA-Public Use
  Company Number: JP-ELI_LILLY_AND_COMPANY-JP200612002254

PATIENT
  Age: 85 Year
  Sex: Female

DRUGS (5)
  1. HUMULIN R [Suspect]
     Dosage: 12 IU, AS NEEDED
     Route: 058
     Dates: start: 20061213, end: 20061213
  2. HUMULIN R [Suspect]
     Dosage: 20 IU, AS NEEDED
     Route: 058
     Dates: start: 20061213, end: 20061213
  3. HUMULIN R [Suspect]
     Dosage: 20 IU, AS NEEDED
     Route: 058
     Dates: start: 20061213, end: 20061213
  4. HUMULIN R [Suspect]
     Dosage: 20 IU, AS NEEDED
     Route: 058
     Dates: start: 20061213, end: 20061213
  5. HERBAL PREPARATION [Concomitant]
     Dates: start: 20061204

REACTIONS (5)
  - BLOOD PRESSURE DECREASED [None]
  - DEATH [None]
  - DECREASED ACTIVITY [None]
  - HEART RATE INCREASED [None]
  - RESPIRATORY DISORDER [None]
